FAERS Safety Report 9523827 (Version 1)
Quarter: 2013Q1

REPORT INFORMATION
  Report Type: Spontaneous
  Country: US (occurrence: None)
  Receive Date: 20130305
  Receipt Date: 20130305
  Transmission Date: 20140127
  Serious: Yes (Hospitalization)
  Sender: FDA-Public Use
  Company Number: 163-21880-12020260

PATIENT
  Age: 64 Year
  Sex: Male

DRUGS (11)
  1. REVLIMID [Suspect]
     Indication: PLASMA CELL MYELOMA
     Route: 048
     Dates: start: 20111025
  2. SMZ/TMP(BACTRIM)(UNKNOWN) [Concomitant]
  3. CARVEDILOL(CARVEDILOL)(TABLETS) [Concomitant]
  4. FAMOTIDINE(FAMOTIDINE)(TABLETS) [Concomitant]
  5. ACYCLOVIR(ACICLOVIR)(TABLETS) [Concomitant]
  6. ASPIRIN-LOW(ACETYLSALICYLIC ACID)(TABLETS) [Concomitant]
  7. AMIDARONE(AMIODARONE HYDROCHLORIDE)(TABLETS) [Concomitant]
  8. POTASSIUM CHLORIDE(POTASSIUM CHLORIDE)(TABLETS) [Suspect]
  9. WARFARIN(WARFARIN)(TABLETS) [Concomitant]
  10. METOPROLOL(METOPROLOL)(TABLETS) [Concomitant]
  11. MULTI CAP FOR HIM(MULTIVITAMINS)(CAPSULES) [Concomitant]

REACTIONS (1)
  - Pneumonia [None]
